FAERS Safety Report 9656835 (Version 1)
Quarter: 2013Q4

REPORT INFORMATION
  Report Type: Spontaneous
  Country: US (occurrence: None)
  Receive Date: 20131029
  Receipt Date: 20131029
  Transmission Date: 20140711
  Serious: No
  Sender: FDA-Public Use
  Company Number: None

PATIENT
  Age: 69 Year
  Sex: Male
  Weight: 105 kg

DRUGS (1)
  1. BORTEZOMIB [Suspect]
     Dates: start: 20130809, end: 20130809

REACTIONS (4)
  - Dermatitis allergic [None]
  - Pruritus [None]
  - Nausea [None]
  - Vomiting [None]
